FAERS Safety Report 13946287 (Version 1)
Quarter: 2017Q3

REPORT INFORMATION
  Report Type: Spontaneous
  Country: US (occurrence: US)
  Receive Date: 20170907
  Receipt Date: 20170907
  Transmission Date: 20171128
  Serious: Yes (Hospitalization)
  Sender: FDA-Public Use
  Company Number: US-JNJFOC-20170905369

PATIENT
  Age: 81 Year
  Sex: Male

DRUGS (9)
  1. IMBRUVICA [Suspect]
     Active Substance: IBRUTINIB
     Indication: LYMPHADENOPATHY
     Route: 048
     Dates: start: 20170118, end: 2017
  2. FINASTERIDE. [Concomitant]
     Active Substance: FINASTERIDE
  3. IMBRUVICA [Suspect]
     Active Substance: IBRUTINIB
     Indication: HYPERHIDROSIS
     Route: 048
     Dates: start: 2017
  4. LISINOPRIL. [Concomitant]
     Active Substance: LISINOPRIL
  5. METOPROLOL TARTRATE. [Concomitant]
     Active Substance: METOPROLOL TARTRATE
  6. SIMVASTATIN. [Concomitant]
     Active Substance: SIMVASTATIN
  7. IMBRUVICA [Suspect]
     Active Substance: IBRUTINIB
     Indication: HYPERHIDROSIS
     Route: 048
     Dates: start: 20170118, end: 2017
  8. IMBRUVICA [Suspect]
     Active Substance: IBRUTINIB
     Indication: LYMPHADENOPATHY
     Route: 048
     Dates: start: 2017
  9. LASIX [Concomitant]
     Active Substance: FUROSEMIDE

REACTIONS (4)
  - Hospitalisation [Recovered/Resolved]
  - Product use in unapproved indication [Unknown]
  - Haemoptysis [Unknown]
  - Off label use [Unknown]

NARRATIVE: CASE EVENT DATE: 20170118
